FAERS Safety Report 12251771 (Version 1)
Quarter: 2016Q2

REPORT INFORMATION
  Report Type: Spontaneous
  Country: US (occurrence: US)
  Receive Date: 20160411
  Receipt Date: 20160411
  Transmission Date: 20160815
  Serious: No
  Sender: FDA-Public Use
  Company Number: US-009507513-1604USA003552

PATIENT
  Sex: Female
  Weight: 80.27 kg

DRUGS (1)
  1. NEXPLANON [Suspect]
     Active Substance: ETONOGESTREL
     Indication: CONTRACEPTION
     Dosage: 3 YEARS/ LEFT ARM
     Route: 059
     Dates: start: 20150417

REACTIONS (5)
  - Pregnancy with implant contraceptive [Unknown]
  - Weight increased [Unknown]
  - Unintended pregnancy [Unknown]
  - Increased appetite [Unknown]
  - Thirst [Unknown]

NARRATIVE: CASE EVENT DATE: 2016
